FAERS Safety Report 5213653-5 (Version None)
Quarter: 2007Q1

REPORT INFORMATION
  Report Type: 
  Country: None (occurrence: None)
  Receive Date: 20070119
  Receipt Date: 20070108
  Transmission Date: 20070707
  Serious: Yes (Hospitalization)
  Sender: FDA-Public Use
  Company Number: FR-PFIZER INC-2007003829

PATIENT
  Age: 59 Year
  Sex: Male

DRUGS (5)
  1. ATARAX [Suspect]
     Indication: AMYOTROPHIC LATERAL SCLEROSIS
     Dosage: DAILY DOSE:25MG
     Route: 048
  2. ATARAX [Suspect]
     Dosage: DAILY DOSE:25MG
     Route: 030
  3. RILUTEK [Suspect]
     Indication: AMYOTROPHIC LATERAL SCLEROSIS
     Dosage: DAILY DOSE:50MG
     Route: 048
  4. MEPRONIZINE [Concomitant]
  5. HALOPERIDOL [Concomitant]
     Indication: DELIRIUM

REACTIONS (2)
  - ALANINE AMINOTRANSFERASE INCREASED [None]
  - ASPARTATE AMINOTRANSFERASE INCREASED [None]
